FAERS Safety Report 4866797-1 (Version None)
Quarter: 2005Q4

REPORT INFORMATION
  Report Type: 
  Country: None (occurrence: None)
  Receive Date: 20051222
  Receipt Date: 20051213
  Transmission Date: 20060501
  Serious: Yes (Death, Hospitalization, Other)
  Sender: FDA-Public Use
  Company Number: 2005169271

PATIENT
  Age: 81 Year
  Sex: Male

DRUGS (7)
  1. SULFASALAZINE [Suspect]
     Indication: DIARRHOEA
     Dosage: 3 GRAM (1 GRAM, 3 IN 1 D) ORAL
     Route: 048
     Dates: start: 20051001, end: 20051123
  2. NAFTIDROFURYL [Concomitant]
  3. PENTOXYPHYLLINE [Concomitant]
  4. OMEPRAZOLE [Concomitant]
  5. LOPERAMID (LOPERAMIDE HYDROCHLORIDE) [Concomitant]
  6. SERTRALINE HCL [Concomitant]
  7. PANCREATIN [Concomitant]

REACTIONS (2)
  - AGRANULOCYTOSIS [None]
  - SEPSIS [None]
